FAERS Safety Report 5051608-4 (Version None)
Quarter: 2006Q3

REPORT INFORMATION
  Report Type: 
  Country: None (occurrence: None)
  Receive Date: 20060711
  Receipt Date: 20060619
  Transmission Date: 20061208
  Serious: Yes (Hospitalization, Other)
  Sender: FDA-Public Use
  Company Number: US200606004307

PATIENT
  Age: 77 Year
  Sex: Female
  Weight: 46.3 kg

DRUGS (3)
  1. FORTEO [Suspect]
     Indication: OSTEOPOROSIS
     Dates: start: 20040101, end: 20060201
  2. FORTEO [Concomitant]
  3. MEVACOR [Concomitant]

REACTIONS (4)
  - DIVERTICULITIS [None]
  - RENAL CELL CARCINOMA STAGE UNSPECIFIED [None]
  - RENAL DISORDER [None]
  - WEIGHT DECREASED [None]
